FAERS Safety Report 23253419 (Version 1)
Quarter: 2023Q4

REPORT INFORMATION
  Report Type: Spontaneous
  Country: US (occurrence: US)
  Receive Date: 20231202
  Receipt Date: 20231202
  Transmission Date: 20240110
  Serious: Yes (Other)
  Sender: FDA-Public Use
  Company Number: US-JNJFOC-20230459543

PATIENT

DRUGS (6)
  1. ABIRATERONE ACETATE [Suspect]
     Active Substance: ABIRATERONE ACETATE
     Indication: Metastases to bone
     Route: 065
  2. ABIRATERONE ACETATE [Suspect]
     Active Substance: ABIRATERONE ACETATE
     Indication: Prostate cancer metastatic
  3. PREDNISONE [Suspect]
     Active Substance: PREDNISONE
     Indication: Prostate cancer metastatic
     Route: 065
  4. PREDNISONE [Suspect]
     Active Substance: PREDNISONE
     Indication: Metastases to bone
  5. DEGARELIX [Concomitant]
     Active Substance: DEGARELIX
     Route: 065
  6. DEGARELIX [Concomitant]
     Active Substance: DEGARELIX

REACTIONS (3)
  - Hypotension [Recovered/Resolved]
  - Secondary adrenocortical insufficiency [Recovered/Resolved]
  - Atrial fibrillation [Recovering/Resolving]
